FAERS Safety Report 11969208 (Version 1)
Quarter: 2016Q1

REPORT INFORMATION
  Report Type: Report from Study
  Country: US (occurrence: US)
  Receive Date: 20160128
  Receipt Date: 20160128
  Transmission Date: 20160526
  Serious: No
  Sender: FDA-Public Use
  Company Number: PHEH2015US005495

PATIENT
  Sex: Male

DRUGS (2)
  1. TASIGNA [Suspect]
     Active Substance: NILOTINIB
     Route: 048
  2. TASIGNA [Suspect]
     Active Substance: NILOTINIB
     Indication: MYELOID LEUKAEMIA
     Dosage: 300 MG, BID
     Route: 048

REACTIONS (4)
  - Sluggishness [Unknown]
  - Constipation [Unknown]
  - Fatigue [Unknown]
  - White blood cell disorder [Unknown]
